FAERS Safety Report 8829984 (Version 1)
Quarter: 2012Q4

REPORT INFORMATION
  Report Type: 
  Country: US (occurrence: US)
  Receive Date: 20121008
  Receipt Date: 20121008
  Transmission Date: 20130627
  Serious: Yes (Death)
  Sender: FDA-Public Use
  Company Number: US-ROCHE-1131302

PATIENT
  Sex: Male

DRUGS (4)
  1. RITUXAN [Suspect]
     Indication: SYSTEMIC LUPUS ERYTHEMATOSUS
     Route: 065
     Dates: start: 20090713, end: 20090718
  2. RITUXAN [Suspect]
     Indication: SYSTEMIC LUPUS ERYTHEMATOSUS
  3. RITUXAN [Suspect]
     Indication: LUPUS ENDOCARDITIS
  4. RITUXAN [Suspect]
     Indication: OFF LABEL USE

REACTIONS (1)
  - Pulmonary fibrosis [Fatal]
